FAERS Safety Report 9308709 (Version 1)
Quarter: 2013Q2

REPORT INFORMATION
  Report Type: Spontaneous
  Country: US (occurrence: US)
  Receive Date: 20130524
  Receipt Date: 20130524
  Transmission Date: 20140414
  Serious: No
  Sender: FDA-Public Use
  Company Number: US-NOVEN-13US006727

PATIENT
  Age: 33 Year
  Sex: Female
  Weight: 54.42 kg

DRUGS (1)
  1. MINIVELLE [Suspect]
     Indication: PRODUCT USED FOR UNKNOWN INDICATION
     Dosage: 0.1 MG, 2/WK
     Route: 062
     Dates: start: 20130409, end: 20130414

REACTIONS (5)
  - Swelling [Recovering/Resolving]
  - Lymphadenopathy [Recovering/Resolving]
  - Application site vesicles [Recovering/Resolving]
  - Application site erythema [Recovering/Resolving]
  - Application site irritation [Recovering/Resolving]
